FAERS Safety Report 6184420-3 (Version None)
Quarter: 2009Q2

REPORT INFORMATION
  Report Type: 
  Country: None (occurrence: None)
  Receive Date: 20090508
  Receipt Date: 20090429
  Transmission Date: 20091009
  Serious: Yes (Life-Threatening, Hospitalization)
  Sender: FDA-Public Use
  Company Number: B0573154A

PATIENT
  Sex: Female

DRUGS (2)
  1. LAMICTAL [Suspect]
     Route: 048
     Dates: start: 20090301, end: 20090407
  2. VENLAFAXINE HCL [Concomitant]
     Dates: start: 20090301, end: 20090407

REACTIONS (3)
  - ERYTHEMA [None]
  - GASTROINTESTINAL MUCOSAL EXFOLIATION [None]
  - TOXIC EPIDERMAL NECROLYSIS [None]
